FAERS Safety Report 8141591-7 (Version None)
Quarter: 2012Q1

REPORT INFORMATION
  Report Type: 
  Country: None (occurrence: None)
  Receive Date: 20120216
  Receipt Date: 20120207
  Transmission Date: 20120608
  Serious: Yes (Other)
  Sender: FDA-Public Use
  Company Number: US-PURDUE-USA-2012-0080566

PATIENT
  Sex: Male

DRUGS (8)
  1. ULTRAM [Suspect]
     Indication: PRODUCT USED FOR UNKNOWN INDICATION
     Dosage: 1 TABLET, PRN
  2. MORPHINE SULFATE [Suspect]
     Indication: PAIN
     Dosage: 20 MG, QID
  3. PERCODAN [Suspect]
     Indication: PAIN
     Dosage: 1 TABLET, QID PRN
  4. MS CONTIN [Suspect]
     Indication: PAIN
     Dosage: 30 MG, QID
     Route: 048
  5. MORPHINE SULFATE [Suspect]
     Indication: BREAKTHROUGH PAIN
     Dosage: 0.5 ML, DAILY
  6. ANEXSIA [Suspect]
     Indication: PRODUCT USED FOR UNKNOWN INDICATION
  7. OXYCONTIN [Suspect]
     Indication: PRODUCT USED FOR UNKNOWN INDICATION
     Dosage: UNK
     Dates: end: 20110601
  8. HYDROCODONE [Suspect]
     Indication: PRODUCT USED FOR UNKNOWN INDICATION
     Dosage: UNK, SEE TEXT

REACTIONS (14)
  - SPLEEN DISORDER [None]
  - PROSTATIC DISORDER [None]
  - POLLAKIURIA [None]
  - PAIN IN EXTREMITY [None]
  - MALAISE [None]
  - PAIN [None]
  - PORTAL HYPERTENSION [None]
  - DIABETES MELLITUS [None]
  - HEPATIC LESION [None]
  - PROSTATOMEGALY [None]
  - GYNAECOMASTIA [None]
  - HEPATIC CIRRHOSIS [None]
  - RENAL DISORDER [None]
  - SOMNOLENCE [None]
